FAERS Safety Report 25011861 (Version 2)
Quarter: 2025Q1

REPORT INFORMATION
  Report Type: Report from Study
  Country: CA (occurrence: CA)
  Receive Date: 20250226
  Receipt Date: 20250310
  Transmission Date: 20250408
  Serious: Yes (Other)
  Sender: AMGEN
  Company Number: CA-Vifor (International) Inc.-VIT-2024-10463

PATIENT
  Age: 78 Year
  Sex: Female

DRUGS (4)
  1. AVACOPAN [Suspect]
     Active Substance: AVACOPAN
     Indication: Anti-neutrophil cytoplasmic antibody positive vasculitis
     Dosage: 10 MG, BID
     Route: 048
     Dates: start: 20230803
  2. AVACOPAN [Suspect]
     Active Substance: AVACOPAN
     Dosage: 20 MG, BID
     Route: 048
  3. AVACOPAN [Suspect]
     Active Substance: AVACOPAN
     Dosage: 30 MG, BID
     Route: 048
     Dates: end: 20250212
  4. AVACOPAN [Suspect]
     Active Substance: AVACOPAN
     Dosage: 30,MG,BID
     Route: 048
     Dates: start: 20230821

REACTIONS (5)
  - Infection [Unknown]
  - Hysterectomy [Not Recovered/Not Resolved]
  - Pneumonia [Not Recovered/Not Resolved]
  - Underdose [Unknown]
  - Illness [Unknown]

NARRATIVE: CASE EVENT DATE: 20230803
